FAERS Safety Report 11176712 (Version 1)
Quarter: 2015Q2

REPORT INFORMATION
  Report Type: Spontaneous
  Country: IL (occurrence: None)
  Receive Date: 20150608
  Receipt Date: 20150608
  Transmission Date: 20150821
  Serious: Yes (Other)
  Sender: FDA-Public Use
  Company Number: US-H14001-15-00897

PATIENT
  Age: 42 Year
  Sex: Male

DRUGS (11)
  1. RIFAMPIN. [Suspect]
     Active Substance: RIFAMPIN
     Indication: PERICARDITIS TUBERCULOUS
  2. PYRAZINAMIDE. [Suspect]
     Active Substance: PYRAZINAMIDE
     Indication: PERICARDITIS TUBERCULOUS
  3. ETHAMBUTOL [Suspect]
     Active Substance: ETHAMBUTOL HYDROCHLORIDE
     Indication: PERICARDITIS TUBERCULOUS
  4. MOXIFLOXACIN [Concomitant]
     Active Substance: MOXIFLOXACIN
  5. EPZICOM (ABACAVIR SULFATE W/LAMIVUDINE) (UNKNOWN) (ABACAVIR SULFATE) [Concomitant]
  6. STRIBILD [Suspect]
     Active Substance: COBICISTAT\ELVITEGRAVIR\EMTRICITABINE\TENOFOVIR DISOPROXIL FUMARATE
     Indication: PERICARDITIS TUBERCULOUS
  7. STRIBILD [Suspect]
     Active Substance: COBICISTAT\ELVITEGRAVIR\EMTRICITABINE\TENOFOVIR DISOPROXIL FUMARATE
     Indication: PERICARDITIS TUBERCULOUS
  8. DOLUTEGRAVIR [Concomitant]
     Active Substance: DOLUTEGRAVIR
  9. ISONIAZID (ISONIAZID) (UNKNOWN) (ISONIAZID) [Suspect]
     Active Substance: ISONIAZID
     Indication: PERICARDITIS TUBERCULOUS
  10. STRIBILD [Suspect]
     Active Substance: COBICISTAT\ELVITEGRAVIR\EMTRICITABINE\TENOFOVIR DISOPROXIL FUMARATE
     Indication: PERICARDITIS TUBERCULOUS
  11. CORTICOSTEROIDS [Concomitant]
     Active Substance: CORTICOSTEROID NOS

REACTIONS (4)
  - Acute kidney injury [None]
  - Hepatotoxicity [None]
  - Atrial fibrillation [None]
  - Adrenocortical insufficiency acute [None]
